FAERS Safety Report 6198450-9 (Version None)
Quarter: 2009Q2

REPORT INFORMATION
  Report Type: 
  Country: None (occurrence: None)
  Receive Date: 20090521
  Receipt Date: 20090513
  Transmission Date: 20091009
  Serious: Yes (Disabling)
  Sender: FDA-Public Use
  Company Number: TR-ASTRAZENECA-2009AC01401

PATIENT
  Age: 72 Year
  Sex: Male

DRUGS (4)
  1. MARCAINE [Suspect]
     Indication: SPINAL ANAESTHESIA
     Route: 008
  2. MARCAINE [Suspect]
     Indication: POSTOPERATIVE ANALGESIA
     Route: 008
  3. GLUTARALDEHYDE SOLUTION [Suspect]
     Route: 037
  4. SERUM PHYSIOLOGIC [Concomitant]
     Route: 037

REACTIONS (7)
  - COLD SWEAT [None]
  - DRUG DISPENSING ERROR [None]
  - HYPOTENSION [None]
  - NAUSEA [None]
  - NERVE INJURY [None]
  - TACHYCARDIA [None]
  - VOMITING [None]
